FAERS Safety Report 16179211 (Version 1)
Quarter: 2019Q2

REPORT INFORMATION
  Report Type: Spontaneous
  Country: US (occurrence: US)
  Receive Date: 20190307
  Receipt Date: 20190307
  Transmission Date: 20190711
  Serious: No
  Sender: FDA-Public Use
  Company Number: None

PATIENT
  Age: 36 Year
  Sex: Female

DRUGS (2)
  1. SPRYCEL [Suspect]
     Active Substance: DASATINIB
     Indication: CHRONIC MYELOID LEUKAEMIA
     Route: 058
     Dates: start: 201604
  2. SPRYCEL [Suspect]
     Active Substance: DASATINIB
     Indication: PHILADELPHIA CHROMOSOME POSITIVE
     Route: 058
     Dates: start: 201604

REACTIONS (4)
  - Oligomenorrhoea [None]
  - Dry skin [None]
  - Menstruation irregular [None]
  - Polymenorrhoea [None]

NARRATIVE: CASE EVENT DATE: 20160512
